FAERS Safety Report 6236403-2 (Version None)
Quarter: 2009Q2

REPORT INFORMATION
  Report Type: 
  Country: None (occurrence: None)
  Receive Date: 20090619
  Receipt Date: 20090506
  Transmission Date: 20091009
  Serious: Yes (Other)
  Sender: FDA-Public Use
  Company Number: NSADSS2003003204

PATIENT
  Age: 42 Year
  Sex: Female

DRUGS (2)
  1. DURAGESIC-100 [Suspect]
     Route: 062
  2. DURAGESIC-100 [Suspect]
     Indication: CANCER PAIN
     Route: 062

REACTIONS (2)
  - THERAPEUTIC AGENT TOXICITY [None]
  - WRONG TECHNIQUE IN DRUG USAGE PROCESS [None]
